FAERS Safety Report 23931544 (Version 2)
Quarter: 2024Q3

REPORT INFORMATION
  Report Type: Spontaneous
  Country: US (occurrence: US)
  Receive Date: 20240603
  Receipt Date: 20240723
  Transmission Date: 20241017
  Serious: No
  Sender: Haleon PLC
  Company Number: US-HALEON-2179462

PATIENT

DRUGS (1)
  1. ALLI [Suspect]
     Active Substance: ORLISTAT
     Indication: Product used for unknown indication
     Dates: start: 20240530

REACTIONS (3)
  - Headache [Unknown]
  - Toothache [Unknown]
  - Dysphagia [Unknown]

NARRATIVE: CASE EVENT DATE: 20240530
